FAERS Safety Report 6692470-3 (Version None)
Quarter: 2010Q2

REPORT INFORMATION
  Report Type: 
  Country: None (occurrence: None)
  Receive Date: 20100422
  Receipt Date: 20100412
  Transmission Date: 20101027
  Serious: Yes (Other)
  Sender: FDA-Public Use
  Company Number: A0855112A

PATIENT
  Age: 40 Year
  Sex: Female

DRUGS (1)
  1. LAMIVUDINE (EPIVIR HBV) [Suspect]
     Dosage: 10ML PER DAY
     Route: 048
     Dates: start: 20020601

REACTIONS (7)
  - ARTHRALGIA [None]
  - ARTHRITIS [None]
  - COLITIS [None]
  - DEPRESSION [None]
  - NAUSEA [None]
  - SINUS HEADACHE [None]
  - VOMITING [None]
